FAERS Safety Report 9521181 (Version 1)
Quarter: 2013Q3

REPORT INFORMATION
  Report Type: Spontaneous
  Country: LB (occurrence: None)
  Receive Date: 20130911
  Receipt Date: 20130911
  Transmission Date: 20140515
  Serious: No
  Sender: FDA-Public Use
  Company Number: AELBN201300121

PATIENT
  Age: 80 Year
  Sex: Male
  Weight: 96 kg

DRUGS (2)
  1. GAMUNEX-C [Suspect]
     Indication: CHRONIC INFLAMMATORY DEMYELINATING POLYRADICULONEUROPATHY
     Route: 042
     Dates: start: 20130304, end: 20130308
  2. LYRICA [Concomitant]

REACTIONS (9)
  - Chills [None]
  - Headache [None]
  - Fatigue [None]
  - Fluid retention [None]
  - Nausea [None]
  - Blood pressure increased [None]
  - Paraesthesia [None]
  - Infusion related reaction [None]
  - Palpitations [None]
